FAERS Safety Report 25810042 (Version 1)
Quarter: 2025Q3

REPORT INFORMATION
  Report Type: Spontaneous
  Country: CN (occurrence: CN)
  Receive Date: 20250917
  Receipt Date: 20250917
  Transmission Date: 20251020
  Serious: Yes (Other)
  Sender: ROCHE
  Company Number: CN-ROCHE-10000388635

PATIENT
  Age: 74 Year
  Sex: Female

DRUGS (1)
  1. MABTHERA [Suspect]
     Active Substance: RITUXIMAB
     Indication: Symptomatic treatment
     Route: 042
     Dates: start: 20250814, end: 20250815

REACTIONS (3)
  - Pyrexia [Recovering/Resolving]
  - Temperature intolerance [Unknown]
  - Chills [Unknown]

NARRATIVE: CASE EVENT DATE: 20250814
